FAERS Safety Report 4929360-X (Version None)
Quarter: 2006Q1

REPORT INFORMATION
  Report Type: 
  Country: None (occurrence: None)
  Receive Date: 20060224
  Receipt Date: 20060220
  Transmission Date: 20060701
  Serious: Yes (Hospitalization, Disabling)
  Sender: FDA-Public Use
  Company Number: 2004-113819-NL

PATIENT
  Age: 36 Year
  Sex: Female

DRUGS (20)
  1. MIRTAZAPINE [Suspect]
     Indication: ANXIETY
     Dosage: SEE IMAGE, ORAL
     Route: 048
     Dates: start: 20010210, end: 20030615
  2. MIRTAZAPINE [Suspect]
     Indication: DEPRESSION
     Dosage: SEE IMAGE, ORAL
     Route: 048
     Dates: start: 20010210, end: 20030615
  3. MIRTAZAPINE [Suspect]
     Indication: INSOMNIA
     Dosage: SEE IMAGE, ORAL
     Route: 048
     Dates: start: 20010210, end: 20030615
  4. MIRTAZAPINE [Suspect]
     Indication: ANXIETY
     Dosage: SEE IMAGE, ORAL
     Route: 048
     Dates: start: 20030722, end: 20030801
  5. MIRTAZAPINE [Suspect]
     Indication: DEPRESSION
     Dosage: SEE IMAGE, ORAL
     Route: 048
     Dates: start: 20030722, end: 20030801
  6. MIRTAZAPINE [Suspect]
     Indication: INSOMNIA
     Dosage: SEE IMAGE, ORAL
     Route: 048
     Dates: start: 20030722, end: 20030801
  7. MIRTAZAPINE [Suspect]
     Indication: ANXIETY
     Dosage: SEE IMAGE, ORAL
     Route: 048
     Dates: start: 20030805, end: 20030810
  8. MIRTAZAPINE [Suspect]
     Indication: DEPRESSION
     Dosage: SEE IMAGE, ORAL
     Route: 048
     Dates: start: 20030805, end: 20030810
  9. MIRTAZAPINE [Suspect]
     Indication: INSOMNIA
     Dosage: SEE IMAGE, ORAL
     Route: 048
     Dates: start: 20030805, end: 20030810
  10. MIRTAZAPINE [Suspect]
     Indication: ANXIETY
     Dosage: SEE IMAGE, ORAL
     Route: 048
     Dates: start: 20030811, end: 20040212
  11. MIRTAZAPINE [Suspect]
     Indication: DEPRESSION
     Dosage: SEE IMAGE, ORAL
     Route: 048
     Dates: start: 20030811, end: 20040212
  12. MIRTAZAPINE [Suspect]
     Indication: INSOMNIA
     Dosage: SEE IMAGE, ORAL
     Route: 048
     Dates: start: 20030811, end: 20040212
  13. GABAPENTIN [Concomitant]
  14. ZOPICLONE [Concomitant]
  15. PIROXICAM [Concomitant]
  16. PENCICLOVIR [Concomitant]
  17. VALACYCLOVIR HCL [Concomitant]
  18. ERYTHROMYCIN ETHYLSUCCINATE [Concomitant]
  19. ZOLPIDEM TARTRATE [Concomitant]
  20. OXAZEPAM [Concomitant]

REACTIONS (3)
  - DYSKINESIA [None]
  - DYSTONIA [None]
  - SOCIAL AVOIDANT BEHAVIOUR [None]
